FAERS Safety Report 13060154 (Version 1)
Quarter: 2016Q4

REPORT INFORMATION
  Report Type: Spontaneous
  Country: TW (occurrence: TW)
  Receive Date: 20161223
  Receipt Date: 20161223
  Transmission Date: 20170207
  Serious: Yes (Other)
  Sender: FDA-Public Use
  Company Number: TW-MYLANLABS-2016M1044202

PATIENT

DRUGS (8)
  1. CLOMIPRAMINE [Interacting]
     Active Substance: CLOMIPRAMINE
     Indication: CHILDHOOD PSYCHOSIS
     Dosage: 25 MG, HS
     Dates: start: 20131104
  2. TRIHEXYPHENIDYL [Concomitant]
     Active Substance: TRIHEXYPHENIDYL
     Indication: CHILDHOOD PSYCHOSIS
     Dosage: 2 MG, BID
     Dates: start: 20131104
  3. HALOPERIDOL. [Interacting]
     Active Substance: HALOPERIDOL
     Indication: CHILDHOOD PSYCHOSIS
     Dosage: 5 MG, HS
     Dates: start: 20140401, end: 20140403
  4. CLOZAPINE. [Suspect]
     Active Substance: CLOZAPINE
     Indication: CHILDHOOD PSYCHOSIS
     Dosage: UNK
     Dates: start: 20081027
  5. CLOZAPINE. [Suspect]
     Active Substance: CLOZAPINE
     Dosage: 25 MG, AM
     Dates: start: 20140403
  6. CLOZAPINE. [Suspect]
     Active Substance: CLOZAPINE
     Dosage: 100 MG, HS
     Dates: start: 20131104
  7. VALPROIC ACID. [Suspect]
     Active Substance: VALPROIC ACID
     Indication: CHILDHOOD PSYCHOSIS
     Dosage: 500 MG, HS
     Dates: start: 20131104
  8. BROTIZOLAM [Concomitant]
     Active Substance: BROTIZOLAM
     Indication: CHILDHOOD PSYCHOSIS
     Dosage: 0.25 MG, HS
     Dates: start: 20131104

REACTIONS (7)
  - Blood pressure decreased [Unknown]
  - C-reactive protein increased [Unknown]
  - Haemoglobin decreased [Unknown]
  - Drug interaction [Unknown]
  - Pneumonia [Unknown]
  - White blood cell count increased [Unknown]
  - Blood creatine phosphokinase increased [Unknown]

NARRATIVE: CASE EVENT DATE: 20140423
